FAERS Safety Report 7417115-6 (Version None)
Quarter: 2011Q2

REPORT INFORMATION
  Report Type: 
  Country: None (occurrence: None)
  Receive Date: 20110415
  Receipt Date: 20110202
  Transmission Date: 20111010
  Serious: No
  Sender: FDA-Public Use
  Company Number: US-B.I. PHARMACEUTICALS,INC./RIDGEFIELD-2011-BP-03774BP

PATIENT
  Sex: Female

DRUGS (19)
  1. LIDODERM [Concomitant]
     Indication: BACK PAIN
  2. FENTANYL-100 [Concomitant]
     Indication: BACK PAIN
  3. NORTRIPTYLINE HCL [Concomitant]
     Indication: HERPES ZOSTER
  4. PRADAXA [Suspect]
     Indication: ATRIAL FIBRILLATION
     Dosage: 300 MG
     Route: 048
     Dates: start: 20101201
  5. DIGOXIN [Concomitant]
     Indication: ATRIAL FIBRILLATION
  6. METOPROLOL TARTRATE [Concomitant]
     Indication: HYPERTENSION
  7. LORAZEPAM [Concomitant]
     Indication: NERVOUSNESS
  8. PRILOSEC OTC [Concomitant]
     Indication: FLATULENCE
  9. OXYCONTIN [Concomitant]
     Indication: BACK PAIN
  10. ZOLPIDEM [Concomitant]
     Indication: SLEEP DISORDER
  11. IRON [Concomitant]
     Indication: PROPHYLAXIS
  12. ZETIA [Concomitant]
     Indication: BLOOD CHOLESTEROL INCREASED
  13. HYDROCORTISONE CREAM [Concomitant]
     Indication: VULVOVAGINAL DRYNESS
  14. REMIDEX [Concomitant]
     Indication: BREAST CANCER
  15. ISOSORBIDE DINITRATE [Concomitant]
     Indication: ATRIAL FIBRILLATION
  16. PRAVASTATIN [Concomitant]
     Indication: BLOOD CHOLESTEROL INCREASED
  17. XELON PATCH [Concomitant]
     Indication: MEMORY IMPAIRMENT
  18. POTASSIUM [Concomitant]
     Indication: PROPHYLAXIS
  19. FUROSEMIDE [Concomitant]
     Indication: SWELLING

REACTIONS (4)
  - AGITATION [None]
  - MUSCLE SPASMS [None]
  - ODYNOPHAGIA [None]
  - PAIN IN EXTREMITY [None]
